FAERS Safety Report 9245392 (Version 1)
Quarter: 2013Q2

REPORT INFORMATION
  Report Type: Report from Study
  Country: GB (occurrence: GB)
  Receive Date: 20130422
  Receipt Date: 20130422
  Transmission Date: 20140414
  Serious: Yes (Other)
  Sender: FDA-Public Use
  Company Number: GB-ROCHE-1216608

PATIENT
  Sex: Female

DRUGS (3)
  1. RITUXIMAB [Suspect]
     Indication: RHEUMATOID ARTHRITIS
     Route: 065
     Dates: start: 20090416, end: 20100222
  2. METHOTREXATE [Concomitant]
  3. HYDROXYCHLOROQUINE [Concomitant]
     Route: 065
     Dates: start: 201103

REACTIONS (1)
  - Skin cancer [Unknown]
